FAERS Safety Report 25169249 (Version 2)
Quarter: 2025Q2

REPORT INFORMATION
  Report Type: Spontaneous
  Country: CN (occurrence: CN)
  Receive Date: 20250407
  Receipt Date: 20250411
  Transmission Date: 20250717
  Serious: Yes (Other)
  Sender: BRISTOL MYERS SQUIBB
  Company Number: CN-BRISTOL-MYERS SQUIBB COMPANY-2025-048151

PATIENT
  Sex: Male

DRUGS (1)
  1. CAMZYOS [Suspect]
     Active Substance: MAVACAMTEN
     Indication: Hypertrophic cardiomyopathy
     Route: 048

REACTIONS (5)
  - Angina pectoris [Unknown]
  - Dyspnoea [Unknown]
  - Suspected counterfeit product [Unknown]
  - Headache [Unknown]
  - Discomfort [Unknown]
